FAERS Safety Report 8153679-5 (Version None)
Quarter: 2012Q1

REPORT INFORMATION
  Report Type: 
  Country: None (occurrence: None)
  Receive Date: 20120221
  Receipt Date: 20120213
  Transmission Date: 20120608
  Serious: Yes (Hospitalization, Other)
  Sender: FDA-Public Use
  Company Number: US-ABBOTT-12P-163-0904484-00

PATIENT
  Sex: Female
  Weight: 72.64 kg

DRUGS (7)
  1. IMITREX [Concomitant]
     Indication: MIGRAINE
  2. LUNESTA [Concomitant]
     Indication: INSOMNIA
  3. 2 UNKNOWN MEDICATIONS [Concomitant]
     Indication: MIGRAINE
  4. HUMIRA [Suspect]
     Indication: CROHN'S DISEASE
     Dates: start: 20100101, end: 20111101
  5. SYNTHROID [Concomitant]
     Indication: HYPOTHYROIDISM
  6. HUMIRA [Suspect]
     Indication: ANKYLOSING SPONDYLITIS
     Dates: start: 20111201, end: 20111201
  7. UNKNOWN MEDICATION [Suspect]
     Indication: MOBILITY DECREASED
     Dates: start: 20111101, end: 20111101

REACTIONS (10)
  - CROHN'S DISEASE [None]
  - MYOCARDIAL INFARCTION [None]
  - ARTHRALGIA [None]
  - ENDOMETRIOSIS [None]
  - PELVIC INFECTION [None]
  - UNRESPONSIVE TO STIMULI [None]
  - WOUND INFECTION STAPHYLOCOCCAL [None]
  - MOBILITY DECREASED [None]
  - GAIT DISTURBANCE [None]
  - SEDATION [None]
